FAERS Safety Report 16417551 (Version 1)
Quarter: 2019Q2

REPORT INFORMATION
  Report Type: Spontaneous
  Country: US (occurrence: US)
  Receive Date: 20190611
  Receipt Date: 20190611
  Transmission Date: 20190711
  Serious: Yes (Other)
  Sender: FDA-Public Use
  Company Number: US-TEVA-2019-US-1053815

PATIENT
  Sex: Female

DRUGS (1)
  1. CLONAZEPAM ACTAVIS [Suspect]
     Active Substance: CLONAZEPAM
     Indication: EPILEPSY
     Route: 065
     Dates: start: 20190515

REACTIONS (3)
  - Insomnia [Unknown]
  - Product substitution issue [Unknown]
  - Seizure [Unknown]

NARRATIVE: CASE EVENT DATE: 20190516
